FAERS Safety Report 21065057 (Version 3)
Quarter: 2022Q4

REPORT INFORMATION
  Report Type: Report from Study
  Country: US (occurrence: US)
  Receive Date: 20220711
  Receipt Date: 20221109
  Transmission Date: 20230113
  Serious: Yes (Hospitalization, Other)
  Sender: FDA-Public Use
  Company Number: US-ABBVIE-22K-163-4461302-00

PATIENT
  Age: 71 Year
  Sex: Male
  Weight: 99.79 kg

DRUGS (28)
  1. IMBRUVICA [Suspect]
     Active Substance: IBRUTINIB
     Indication: Chronic lymphocytic leukaemia
     Route: 058
  2. IMBRUVICA [Suspect]
     Active Substance: IBRUTINIB
     Indication: Chronic lymphocytic leukaemia
     Dosage: FORM STRENGTH: 420 MILLIGRAM
     Route: 048
     Dates: start: 201903
  3. IMBRUVICA [Suspect]
     Active Substance: IBRUTINIB
     Indication: Chronic lymphocytic leukaemia
     Route: 048
     Dates: end: 20220620
  4. IMBRUVICA [Suspect]
     Active Substance: IBRUTINIB
     Indication: Chronic lymphocytic leukaemia
     Route: 048
     Dates: start: 2022, end: 20220701
  5. OMEPRAZOLE [Concomitant]
     Active Substance: OMEPRAZOLE
     Indication: Product used for unknown indication
     Dosage: FORM STRENGTH: 40 MG
     Route: 065
  6. ELIQUIS [Concomitant]
     Active Substance: APIXABAN
     Indication: Product used for unknown indication
     Route: 065
  7. METOPROLOL SUCCINATE [Concomitant]
     Active Substance: METOPROLOL SUCCINATE
     Indication: Product used for unknown indication
     Dosage: 1/2 TABLET ONCE DAILY AT. BEDTIME, FORM STRENGTH: 2.5 MILLIGRAM
     Route: 065
  8. LOTENSIN [Concomitant]
     Active Substance: BENAZEPRIL HYDROCHLORIDE
     Indication: Product used for unknown indication
     Dosage: GIVEN ON A AS NEEDED BASIS
     Route: 065
  9. Qunol CoQ10 [Concomitant]
     Indication: Product used for unknown indication
     Dosage: FORM STRENGTH: 100 MG
     Route: 065
  10. METOPROLOL [Concomitant]
     Active Substance: METOPROLOL
     Indication: Product used for unknown indication
     Dosage: GIVEN ON A AS NEEDED BASIS
     Route: 065
  11. LORATADINE [Concomitant]
     Active Substance: LORATADINE
     Indication: Product used for unknown indication
     Dosage: ONE TABLET EACH MORNING, FORM STRENGTH: 10 MG
     Route: 065
  12. PAXLOVID [Concomitant]
     Active Substance: NIRMATRELVIR\RITONAVIR
     Indication: Product used for unknown indication
     Route: 065
  13. LOSARTAN [Concomitant]
     Active Substance: LOSARTAN
     Indication: Product used for unknown indication
     Dosage: 1 TABLET DAILY, FORM STRENGTH: 25 MG
     Route: 065
  14. VITAMIN D3 [Concomitant]
     Active Substance: CHOLECALCIFEROL
     Indication: Product used for unknown indication
     Dosage: FORM STRENGTH: 5000 MILLIGRAM
     Route: 065
  15. PSYLLIUM HUSK [Concomitant]
     Active Substance: PSYLLIUM HUSK
     Indication: Product used for unknown indication
     Dosage: ONCE DAILY, FORM STRENGTH: 500 MILLIGRAM
     Route: 065
  16. Azelastin 1% 137 mcg [Concomitant]
     Indication: Product used for unknown indication
     Dosage: 2 PUFFS EACH NOSTRIL TWICE DAILY
     Route: 065
  17. DIPHENHYDRAMINE [Concomitant]
     Active Substance: DIPHENHYDRAMINE
     Indication: Product used for unknown indication
     Dosage: FORM STRENGTH: 25 MG, ONE CAPSULE DAILY
     Route: 065
  18. AMLODIPINE BESYLATE [Concomitant]
     Active Substance: AMLODIPINE BESYLATE
     Indication: Product used for unknown indication
     Dosage: ONE TABLET AS NEEDED (IF BP REACHES140). FORM STRENGTH: 2.5 MG
     Route: 065
  19. CIPROFLOXACIN [Concomitant]
     Active Substance: CIPROFLOXACIN
     Indication: Product used for unknown indication
     Dosage: EMERGENCY O/H TO BE STARTED AT THE FIRST SIGN OF INFECTION
     Route: 065
  20. VITAMIN C [Concomitant]
     Active Substance: ASCORBIC ACID
     Indication: Product used for unknown indication
     Dosage: FORM STRENGTH: 1000 MG
     Route: 065
  21. ACETAMINOPHEN [Concomitant]
     Active Substance: ACETAMINOPHEN
     Indication: Product used for unknown indication
     Dosage: 2 TABLETS PRIOR TO WEEKLY SUB-CUTANEOUS IMMUNE GLOBULIN (SCIG) INFUSION AND AS NEEDED OTHERWISE.?...
     Route: 065
  22. HIZENTRA [Concomitant]
     Active Substance: HUMAN IMMUNOGLOBULIN G
     Indication: Product used for unknown indication
     Dosage: WEEKLY SCIG INFUSION, FORM STRENGTH: 12 MG
     Route: 065
  23. FAMOTIDINE [Concomitant]
     Active Substance: FAMOTIDINE
     Indication: Product used for unknown indication
     Dosage: 1 TABLET NIGHTLY, FORM STRENGTH: 20 MILLIGRAM
     Route: 065
  24. ATORVASTATIN [Concomitant]
     Active Substance: ATORVASTATIN
     Indication: Product used for unknown indication
     Dosage: FORM STRENGTH: 80 MILLIGRAM
     Route: 065
  25. VITAMIN B12 [Concomitant]
     Active Substance: CYANOCOBALAMIN
     Indication: Product used for unknown indication
     Dosage: FORM STRENGTH: 2500 MICROGRAM
     Route: 065
  26. ALLOPURINOL [Concomitant]
     Active Substance: ALLOPURINOL
     Indication: Product used for unknown indication
     Dosage: ONE TABLET DAILY, FORM STRENGTH: 300 MG
     Route: 065
  27. MONTELUKAST [Concomitant]
     Active Substance: MONTELUKAST SODIUM
     Indication: Product used for unknown indication
     Dosage: ONE TABLET DAILY, FORM STRENGTH: 10 MG
     Route: 065
  28. METHOCARBAMOL [Concomitant]
     Active Substance: METHOCARBAMOL
     Indication: Back pain
     Dosage: FORM STRENGTH: 750 MG, TWICE DAILY AS NEEDED
     Route: 065

REACTIONS (13)
  - Hip arthroplasty [Recovered/Resolved]
  - Mobility decreased [Unknown]
  - Femur fracture [Unknown]
  - Arthralgia [Unknown]
  - Orthostatic hypotension [Unknown]
  - Loss of personal independence in daily activities [Unknown]
  - Pain [Unknown]
  - White blood cell count abnormal [Unknown]
  - Hospitalisation [Recovered/Resolved]
  - Haematocrit decreased [Unknown]
  - SARS-CoV-2 test positive [Unknown]
  - Haemoglobin decreased [Unknown]
  - White blood cell count increased [Unknown]

NARRATIVE: CASE EVENT DATE: 20201222
